FAERS Safety Report 6556840-6 (Version None)
Quarter: 2010Q1

REPORT INFORMATION
  Report Type: 
  Country: None (occurrence: None)
  Receive Date: 20100128
  Receipt Date: 20100121
  Transmission Date: 20100710
  Serious: Yes (Death)
  Sender: FDA-Public Use
  Company Number: PHEH2010US00453

PATIENT
  Sex: Female

DRUGS (6)
  1. EXJADE [Suspect]
     Indication: IRON METABOLISM DISORDER
     Dosage: 2250 MG, QD
     Route: 048
     Dates: start: 20090325
  2. EXJADE [Suspect]
     Indication: IRON OVERLOAD
  3. EXJADE [Suspect]
     Indication: BLOOD PRODUCT TRANSFUSION DEPENDENT
  4. INTERFERON [Concomitant]
  5. RIBAVIRIN [Concomitant]
  6. NORVASC [Concomitant]
     Dosage: 5 MG, QD
     Route: 048

REACTIONS (1)
  - CARDIAC DISORDER [None]
